FAERS Safety Report 5941948-6 (Version None)
Quarter: 2008Q4

REPORT INFORMATION
  Report Type: 
  Country: None (occurrence: None)
  Receive Date: 20081105
  Receipt Date: 20081030
  Transmission Date: 20090506
  Serious: Yes (Other)
  Sender: FDA-Public Use
  Company Number: JP-ABBOTT-08P-087-0477947-00

PATIENT
  Age: 55 Year
  Sex: Male

DRUGS (6)
  1. KLARICID TABLETS [Suspect]
     Indication: PYREXIA
     Dosage: NOT REPORTED
     Route: 048
     Dates: start: 20070501, end: 20070501
  2. KLARICID TABLETS [Suspect]
     Indication: COUGH
  3. MINOCYCLINE HYDROCHLORIDE [Suspect]
     Indication: PYREXIA
     Dosage: NOT REPORTED
     Route: 048
     Dates: start: 20070501, end: 20070501
  4. MINOCYCLINE HYDROCHLORIDE [Suspect]
     Indication: COUGH
  5. CEFCAPENE PIVOXIL HYDROCHLORIDE [Suspect]
     Indication: PYREXIA
     Dosage: NOT REPORTED
     Route: 048
     Dates: start: 20070501, end: 20070501
  6. CEFCAPENE PIVOXIL HYDROCHLORIDE [Suspect]
     Indication: COUGH

REACTIONS (2)
  - TUBULOINTERSTITIAL NEPHRITIS [None]
  - UVEITIS [None]
